FAERS Safety Report 5023606-8 (Version None)
Quarter: 2006Q2

REPORT INFORMATION
  Report Type: 
  Country: None (occurrence: None)
  Receive Date: 20060606
  Receipt Date: 20060412
  Transmission Date: 20061013
  Serious: Yes (Hospitalization)
  Sender: FDA-Public Use
  Company Number: 6022828

PATIENT
  Age: 48 Year
  Sex: Female

DRUGS (2)
  1. LEVOTHYROXINE SODIUM [Suspect]
     Indication: HYPOTHYROIDISM
     Dosage: 100,000 MCG (100 MCG, 1 IN 1 D)
     Route: 048
     Dates: start: 20030601, end: 20060427
  2. THYROID PREPARATION [Suspect]
     Dosage: 50 MG (50 MG, 2 IN 1 D)
     Route: 048
     Dates: start: 20060101, end: 20060121

REACTIONS (11)
  - ASTHENIA [None]
  - HOT FLUSH [None]
  - HYPERHIDROSIS [None]
  - HYPERTHYROIDISM [None]
  - OEDEMA PERIPHERAL [None]
  - OVERDOSE [None]
  - PAIN IN EXTREMITY [None]
  - SINUS TACHYCARDIA [None]
  - THROMBOSIS [None]
  - THYROXINE FREE INCREASED [None]
  - TRI-IODOTHYRONINE INCREASED [None]
